FAERS Safety Report 12113618 (Version 1)
Quarter: 2016Q1

REPORT INFORMATION
  Report Type: Spontaneous
  Country: US (occurrence: None)
  Receive Date: 20160224
  Receipt Date: 20160224
  Transmission Date: 20160526
  Serious: Yes (Other)
  Sender: FDA-Public Use
  Company Number: None

PATIENT
  Age: 54 Year
  Sex: Female
  Weight: 48.08 kg

DRUGS (1)
  1. TACROLIMUS 1MG [Suspect]
     Active Substance: TACROLIMUS

REACTIONS (5)
  - Nausea [None]
  - Diarrhoea [None]
  - Vomiting [None]
  - Dizziness [None]
  - Malaise [None]
